FAERS Safety Report 17636479 (Version 1)
Quarter: 2020Q2

REPORT INFORMATION
  Report Type: Spontaneous
  Country: DE (occurrence: DE)
  Receive Date: 20200407
  Receipt Date: 20200407
  Transmission Date: 20200713
  Serious: Yes (Congenital Anomaly, Other)
  Sender: FDA-Public Use
  Company Number: DE-TORRENT-00017132

PATIENT
  Sex: Female
  Weight: 1 kg

DRUGS (5)
  1. FOLIO FORTE [Concomitant]
     Active Substance: FOLIC ACID\VITAMINS
     Indication: PROPHYLAXIS OF NEURAL TUBE DEFECT
     Route: 064
     Dates: start: 20190426, end: 20190901
  2. SERTRALINE [Suspect]
     Active Substance: SERTRALINE HYDROCHLORIDE
     Indication: DEPRESSION
     Dosage: 100 [MG/D ]
     Route: 064
     Dates: start: 20190426, end: 20191213
  3. TRACTOCILE [Concomitant]
     Active Substance: ATOSIBAN
     Indication: TOCOLYSIS
     Dosage: UNKNOWN
     Route: 064
  4. CELESTAN [Concomitant]
     Active Substance: BETAMETHASONE
     Indication: MATERNAL THERAPY TO ENHANCE FOETAL LUNG MATURITY
     Route: 064
     Dates: start: 20191113, end: 20191114
  5. UTROGEST [Concomitant]
     Active Substance: PROGESTERONE
     Indication: HAEMORRHAGE IN PREGNANCY
     Dosage: UNKNWON
     Route: 064

REACTIONS (2)
  - Foetal exposure during pregnancy [Unknown]
  - Fallot^s tetralogy [Not Recovered/Not Resolved]

NARRATIVE: CASE EVENT DATE: 20190426
